FAERS Safety Report 12110286 (Version 1)
Quarter: 2016Q1

REPORT INFORMATION
  Report Type: Report from Study
  Country: US (occurrence: US)
  Receive Date: 20160224
  Receipt Date: 20160224
  Transmission Date: 20160526
  Serious: Yes (Other)
  Sender: FDA-Public Use
  Company Number: US-B.I. PHARMACEUTICALS,INC./RIDGEFIELD-2016-BI-11178BI

PATIENT

DRUGS (1)
  1. MICARDIS [Suspect]
     Active Substance: TELMISARTAN
     Indication: CARDIOVASCULAR EVENT PROPHYLAXIS
     Dosage: 80 MG
     Route: 048

REACTIONS (1)
  - Thrombosis [Unknown]
